FAERS Safety Report 9901635 (Version 2)
Quarter: 2014Q1

REPORT INFORMATION
  Report Type: Spontaneous
  Country: US (occurrence: US)
  Receive Date: 20140217
  Receipt Date: 20140217
  Transmission Date: 20141002
  Serious: No
  Sender: FDA-Public Use
  Company Number: US-GILEAD-2011-0044456

PATIENT
  Sex: Male

DRUGS (14)
  1. LETAIRIS [Suspect]
     Indication: PULMONARY HYPERTENSION
     Dosage: 5 MG, QD
     Route: 048
     Dates: start: 20110802
  2. LETAIRIS [Suspect]
     Indication: CHRONIC OBSTRUCTIVE PULMONARY DISEASE
  3. LETAIRIS [Suspect]
     Indication: ASBESTOSIS
  4. LETAIRIS [Suspect]
     Indication: NON-SMALL CELL LUNG CANCER
  5. LETAIRIS [Suspect]
     Indication: SLEEP APNOEA SYNDROME
  6. LETAIRIS [Suspect]
     Indication: PULMONARY EMBOLISM
  7. QUINAPRIL [Concomitant]
  8. ADCIRCA [Concomitant]
  9. WARFARIN [Concomitant]
  10. LASIX                              /00032601/ [Concomitant]
  11. KCL [Concomitant]
  12. ASA [Concomitant]
  13. LIPITOR [Concomitant]
  14. VITAMIN D NOS [Concomitant]

REACTIONS (1)
  - Dyspnoea [Unknown]
